FAERS Safety Report 24560048 (Version 1)
Quarter: 2024Q4

REPORT INFORMATION
  Report Type: Spontaneous
  Country: US (occurrence: US)
  Receive Date: 20241029
  Receipt Date: 20241029
  Transmission Date: 20250115
  Serious: No
  Sender: ALEXION PHARMACEUTICALS
  Company Number: US-AstraZeneca-CH-00732834A

PATIENT

DRUGS (4)
  1. BRILINTA [Suspect]
     Active Substance: TICAGRELOR
  2. BRILINTA [Suspect]
     Active Substance: TICAGRELOR
  3. BRILINTA [Suspect]
     Active Substance: TICAGRELOR
  4. BRILINTA [Suspect]
     Active Substance: TICAGRELOR

REACTIONS (6)
  - Malaise [Not Recovered/Not Resolved]
  - Eructation [Not Recovered/Not Resolved]
  - Nervousness [Not Recovered/Not Resolved]
  - Sleep disorder [Not Recovered/Not Resolved]
  - Heart rate increased [Not Recovered/Not Resolved]
  - Chest pain [Not Recovered/Not Resolved]
